FAERS Safety Report 6118807-1 (Version None)
Quarter: 2009Q1

REPORT INFORMATION
  Report Type: 
  Country: None (occurrence: None)
  Receive Date: 20090316
  Receipt Date: 20090309
  Transmission Date: 20090719
  Serious: Yes (Death, Other)
  Sender: FDA-Public Use
  Company Number: PHHY2009BR08648

PATIENT
  Age: 85 Year
  Sex: Female

DRUGS (6)
  1. EXELON [Suspect]
     Indication: DEMENTIA ALZHEIMER'S TYPE
     Dosage: 1.5 MG, BID
     Dates: start: 20040101
  2. DIOVAN HCT [Suspect]
     Indication: HYPERTENSION
  3. LEXOTAN [Concomitant]
     Indication: ANXIETY
     Dosage: 3 MG, QD
  4. LEXOTAN [Concomitant]
     Indication: AGITATION
  5. ASPIRIN [Concomitant]
  6. FLUOXETINE [Concomitant]

REACTIONS (7)
  - APATHY [None]
  - DEATH [None]
  - DEMENTIA [None]
  - HALLUCINATION [None]
  - HYPERTENSION [None]
  - MOVEMENT DISORDER [None]
  - PARKINSONISM [None]
